FAERS Safety Report 6130123-0 (Version None)
Quarter: 2009Q1

REPORT INFORMATION
  Report Type: 
  Country: None (occurrence: None)
  Receive Date: 20090324
  Receipt Date: 20090314
  Transmission Date: 20090719
  Serious: Yes (Other)
  Sender: FDA-Public Use
  Company Number: PHHY2009US09712

PATIENT
  Sex: Male

DRUGS (2)
  1. EXFORGE [Suspect]
     Route: 065
  2. TEKTURNA HCT [Suspect]
     Route: 065

REACTIONS (1)
  - BLOOD PRESSURE INCREASED [None]
